FAERS Safety Report 26009811 (Version 1)
Quarter: 2025Q4

REPORT INFORMATION
  Report Type: Spontaneous
  Country: GB (occurrence: GB)
  Receive Date: 20251107
  Receipt Date: 20251107
  Transmission Date: 20260118
  Serious: Yes (Other)
  Sender: ABBVIE
  Company Number: GB-ABBVIE-6534671

PATIENT
  Age: 18 Year

DRUGS (1)
  1. UPADACITINIB [Suspect]
     Active Substance: UPADACITINIB
     Indication: Crohn^s disease
     Route: 048
     Dates: start: 202411, end: 202507

REACTIONS (1)
  - Epstein-Barr virus associated lymphoma [Unknown]

NARRATIVE: CASE EVENT DATE: 20250901
